FAERS Safety Report 12448174 (Version 2)
Quarter: 2017Q1

REPORT INFORMATION
  Report Type: Spontaneous
  Country: US (occurrence: US)
  Receive Date: 20160608
  Receipt Date: 20170329
  Transmission Date: 20170428
  Serious: Yes (Hospitalization)
  Sender: FDA-Public Use
  Company Number: US-ASTRAZENECA-2016SE59077

PATIENT
  Age: 58 Year
  Sex: Female
  Weight: 83.9 kg

DRUGS (3)
  1. INSULIN [Concomitant]
     Active Substance: INSULIN NOS
  2. FARXIGA [Suspect]
     Active Substance: DAPAGLIFLOZIN PROPANEDIOL
     Indication: TYPE 2 DIABETES MELLITUS
     Route: 048
     Dates: start: 201505, end: 20160524
  3. AMARIL [Concomitant]

REACTIONS (15)
  - Thrombosis [Not Recovered/Not Resolved]
  - Toe amputation [Recovering/Resolving]
  - Dry eye [Not Recovered/Not Resolved]
  - Weight decreased [Unknown]
  - Gait disturbance [Not Recovered/Not Resolved]
  - Tendon rupture [Not Recovered/Not Resolved]
  - Dehydration [Unknown]
  - Eye pain [Not Recovered/Not Resolved]
  - Thyroid disorder [Unknown]
  - Fungal infection [Not Recovered/Not Resolved]
  - Blood glucose increased [Unknown]
  - Localised infection [Not Recovered/Not Resolved]
  - Limb discomfort [Not Recovered/Not Resolved]
  - Thirst [Not Recovered/Not Resolved]
  - Urinary tract infection [Recovering/Resolving]

NARRATIVE: CASE EVENT DATE: 2015
